FAERS Safety Report 6213783-5 (Version None)
Quarter: 2009Q2

REPORT INFORMATION
  Report Type: 
  Country: None (occurrence: None)
  Receive Date: 20090602
  Receipt Date: 20090522
  Transmission Date: 20091009
  Serious: Yes (Hospitalization)
  Sender: FDA-Public Use
  Company Number: 2009-02033

PATIENT
  Age: 19 Year
  Sex: Female
  Weight: 72 kg

DRUGS (4)
  1. VELCADE [Suspect]
     Indication: LIVER TRANSPLANT REJECTION
     Dosage: 1.3 MG/M2, INTRAVENOUS
     Route: 042
     Dates: start: 20090317
  2. IMMUNE GLOBULIN (HUMAN) [Concomitant]
  3. MYFORTIC [Concomitant]
  4. VALCYTE [Concomitant]

REACTIONS (4)
  - BACK PAIN [None]
  - MIGRAINE [None]
  - NAUSEA [None]
  - NEUTROPENIA [None]
